FAERS Safety Report 9464121 (Version 2)
Quarter: 2013Q3

REPORT INFORMATION
  Report Type: Spontaneous
  Country: US (occurrence: US)
  Receive Date: 20130819
  Receipt Date: 20130916
  Transmission Date: 20140515
  Serious: Yes (Hospitalization)
  Sender: FDA-Public Use
  Company Number: US-JNJFOC-20130807207

PATIENT
  Age: 69 Year
  Sex: Female

DRUGS (7)
  1. SIMPONI [Suspect]
     Indication: COLITIS ULCERATIVE
     Route: 058
  2. SIMPONI [Suspect]
     Indication: COLITIS ULCERATIVE
     Dosage: WEEK 0
     Route: 058
     Dates: start: 20130808
  3. IMURAN [Concomitant]
     Indication: COLITIS ULCERATIVE
     Route: 065
     Dates: start: 2012
  4. STEROIDS NOS [Concomitant]
     Route: 065
  5. ACIPHEX [Concomitant]
     Indication: GASTROOESOPHAGEAL REFLUX DISEASE
     Route: 065
  6. APRISO [Concomitant]
     Indication: COLITIS ULCERATIVE
     Route: 065
     Dates: end: 20130812
  7. FERROUS FUMERATE [Concomitant]
     Indication: ANAEMIA
     Route: 065

REACTIONS (3)
  - Dizziness [Recovered/Resolved]
  - Disorientation [Recovered/Resolved]
  - Hallucination [Recovered/Resolved]
